FAERS Safety Report 25682531 (Version 1)
Quarter: 2025Q3

REPORT INFORMATION
  Report Type: Spontaneous
  Country: AU (occurrence: AU)
  Receive Date: 20250814
  Receipt Date: 20250814
  Transmission Date: 20251020
  Serious: Yes (Death, Other)
  Sender: MERCK SHARP & DOHME LLC
  Company Number: AU-ROCHE-1667356

PATIENT
  Age: 15 Year
  Sex: Female

DRUGS (8)
  1. CASPOFUNGIN ACETATE [Suspect]
     Active Substance: CASPOFUNGIN ACETATE
     Indication: Product used for unknown indication
  2. BACTRIM [Suspect]
     Active Substance: SULFAMETHOXAZOLE\TRIMETHOPRIM
     Indication: Pneumonia klebsiella
  3. VFEND [Suspect]
     Active Substance: VORICONAZOLE
     Indication: Product used for unknown indication
     Route: 042
  4. VFEND [Suspect]
     Active Substance: VORICONAZOLE
     Indication: Product used for unknown indication
     Route: 048
  5. LINEZOLID [Suspect]
     Active Substance: LINEZOLID
     Indication: Pneumonia klebsiella
     Route: 042
  6. TIGECYCLINE [Suspect]
     Active Substance: TIGECYCLINE
     Indication: Fungal infection
     Route: 042
  7. TIGECYCLINE [Suspect]
     Active Substance: TIGECYCLINE
     Indication: Fungal infection
     Route: 048
  8. AMBISOME [Suspect]
     Active Substance: AMPHOTERICIN B
     Indication: Product used for unknown indication

REACTIONS (8)
  - General physical health deterioration [Fatal]
  - Acute kidney injury [Fatal]
  - Nodule [Fatal]
  - Liver function test increased [Fatal]
  - Aspergillus test positive [Fatal]
  - Hydrocephalus [Fatal]
  - Skin mass [Fatal]
  - Drug ineffective [Fatal]
